FAERS Safety Report 23888729 (Version 1)
Quarter: 2024Q2

REPORT INFORMATION
  Report Type: Spontaneous
  Country: FR (occurrence: FR)
  Receive Date: 20240523
  Receipt Date: 20240523
  Transmission Date: 20240715
  Serious: Yes (Death)
  Sender: FDA-Public Use
  Company Number: None

PATIENT
  Age: 79 Year
  Sex: Male
  Weight: 61.4 kg

DRUGS (29)
  1. FASTURTEC [Suspect]
     Active Substance: RASBURICASE
     Indication: Tumour lysis syndrome
     Dosage: 7.5 MG
     Route: 042
     Dates: start: 20240405, end: 20240405
  2. ACETAMINOPHEN [Suspect]
     Active Substance: ACETAMINOPHEN
     Indication: Pain
     Dosage: 1 G
     Route: 042
     Dates: start: 20240407, end: 20240407
  3. ACETAMINOPHEN [Suspect]
     Active Substance: ACETAMINOPHEN
     Dosage: 1 G
     Route: 042
     Dates: start: 20240309, end: 20240407
  4. COTRIMOXAZOLE [Suspect]
     Active Substance: SULFAMETHOXAZOLE\TRIMETHOPRIM
     Indication: Opportunistic infection prophylaxis
     Dosage: 1 DF, QOD
     Route: 048
     Dates: start: 20240307, end: 20240402
  5. PHYTONADIONE [Suspect]
     Active Substance: PHYTONADIONE
     Indication: Vitamin supplementation
     Dosage: 10 MG, QD
     Route: 042
     Dates: start: 20240402, end: 20240405
  6. PHYTONADIONE [Suspect]
     Active Substance: PHYTONADIONE
     Dosage: 10 MG, TID
     Route: 042
     Dates: start: 20240406, end: 20240408
  7. VITAMIN B12 [Concomitant]
     Active Substance: CYANOCOBALAMIN
     Indication: Vitamin supplementation
     Dosage: 1000 UG, QD
     Route: 048
     Dates: start: 20240311, end: 20240408
  8. VALSARTAN [Concomitant]
     Active Substance: VALSARTAN
     Indication: Hypertension
     Dosage: 40 MG, QD
     Route: 048
     Dates: end: 20240408
  9. SODIUM BICARBONATE [Concomitant]
     Active Substance: SODIUM BICARBONATE
     Indication: Dry mouth
     Dosage: 1 DF, TID
     Route: 002
     Dates: start: 20240309, end: 20240408
  10. LEUCOVORIN CALCIUM [Concomitant]
     Active Substance: LEUCOVORIN CALCIUM
     Indication: Vitamin supplementation
     Dosage: 25 MG, QD
     Route: 048
     Dates: start: 20240310, end: 20240408
  11. VITAMIN B6 [Concomitant]
     Active Substance: PYRIDOXINE HYDROCHLORIDE
     Indication: Vitamin supplementation
     Dosage: 250 MG, QD
     Route: 048
     Dates: start: 20240307, end: 20240408
  12. PANTOPRAZOLE [Concomitant]
     Active Substance: PANTOPRAZOLE
     Indication: Gastrooesophageal reflux prophylaxis
     Dosage: 20 MG, QD
     Route: 048
     Dates: end: 20240409
  13. ALFUZOSIN [Concomitant]
     Active Substance: ALFUZOSIN
     Indication: Benign prostatic hyperplasia
     Dosage: 10 MG, QD
     Route: 048
     Dates: end: 20240408
  14. RACECADOTRIL [Concomitant]
     Active Substance: RACECADOTRIL
     Indication: Diarrhoea
     Dosage: 100 MG
     Route: 048
     Dates: start: 20240309, end: 20240408
  15. VENETOCLAX [Concomitant]
     Active Substance: VENETOCLAX
     Indication: Cardiac amyloidosis
     Dosage: 200 MG, QD
     Route: 048
     Dates: start: 20240404, end: 20240408
  16. VENETOCLAX [Concomitant]
     Active Substance: VENETOCLAX
     Route: 048
     Dates: start: 20240402, end: 20240402
  17. LATANOPROST [Concomitant]
     Active Substance: LATANOPROST
     Indication: Glaucoma
     Dosage: 1 UNK, QD
     Route: 031
     Dates: start: 20240319, end: 20240408
  18. ACUPAN [Concomitant]
     Active Substance: NEFOPAM HYDROCHLORIDE
     Indication: Pain
     Dosage: 20 MG
     Route: 042
     Dates: start: 20240309, end: 20240408
  19. EPLERENONE [Concomitant]
     Active Substance: EPLERENONE
     Indication: Cardiac failure
     Dosage: 25 MG, QD
     Route: 048
     Dates: start: 20240326, end: 20240408
  20. CARTEOLOL HYDROCHLORIDE [Concomitant]
     Active Substance: CARTEOLOL HYDROCHLORIDE
     Indication: Glaucoma
     Dosage: 1 DROP, QD
     Route: 031
     Dates: start: 20240319, end: 20240408
  21. CHLORHEXIDINE;CHLOROBUTANOL [Concomitant]
     Indication: Dry mouth
     Dosage: 1 DF, TID
     Route: 002
     Dates: start: 20240309, end: 20240408
  22. MIDODRINE [Concomitant]
     Active Substance: MIDODRINE
     Indication: Hypotension
     Dosage: 2.5 MG, TID
     Route: 048
     Dates: start: 20240310, end: 20240408
  23. INNOHEP [Concomitant]
     Active Substance: TINZAPARIN SODIUM
     Indication: Thrombosis prophylaxis
     Dosage: 11000 IU, QD
     Route: 058
     Dates: start: 20240330, end: 20240408
  24. RIMIFON [Concomitant]
     Active Substance: ISONIAZID
     Indication: Latent tuberculosis
     Dosage: 300 MG, QD
     Route: 048
     Dates: start: 20240307, end: 20240408
  25. FUROSEMIDE [Concomitant]
     Active Substance: FUROSEMIDE
     Indication: Cardiac failure
     Dosage: 125 MG, QD
     Route: 042
     Dates: start: 20240308, end: 20240409
  26. ENTECAVIR [Concomitant]
     Active Substance: ENTECAVIR
     Indication: Opportunistic infection prophylaxis
     Dosage: 0.5 MG, QD
     Route: 048
     Dates: start: 20240308, end: 20240408
  27. ONDANSETRON HYDROCHLORIDE [Concomitant]
     Active Substance: ONDANSETRON HYDROCHLORIDE
     Indication: Vomiting
     Dosage: 8 MG
     Route: 042
     Dates: start: 20240309, end: 20240408
  28. METOCLOPRAMIDE HYDROCHLORIDE [Concomitant]
     Active Substance: METOCLOPRAMIDE HYDROCHLORIDE
     Indication: Vomiting
     Dosage: 10 MG
     Route: 042
     Dates: start: 20240309, end: 20240408
  29. MONTMORILLONITE [Concomitant]
     Active Substance: MONTMORILLONITE
     Indication: Diarrhoea
     Dosage: 3 G
     Route: 048
     Dates: start: 20240309, end: 20240408

REACTIONS (3)
  - Glucose-6-phosphate dehydrogenase deficiency [Fatal]
  - Contraindicated product prescribed [Unknown]
  - Product communication issue [Unknown]

NARRATIVE: CASE EVENT DATE: 20240408
